FAERS Safety Report 18940403 (Version 1)
Quarter: 2021Q1

REPORT INFORMATION
  Report Type: Spontaneous
  Country: US (occurrence: US)
  Receive Date: 20210225
  Receipt Date: 20210225
  Transmission Date: 20210420
  Serious: Yes (Disabling)
  Sender: FDA-Public Use
  Company Number: None

PATIENT
  Age: 53 Year
  Sex: Female
  Weight: 95.4 kg

DRUGS (1)
  1. MONTELUKAST SOD 10 MG TABLET SUBSTITUTED FOR SINGULAIR 10 MG TABLET [Suspect]
     Active Substance: MONTELUKAST SODIUM
     Indication: CAPSULAR CONTRACTURE ASSOCIATED WITH IMPLANT
     Dosage: ?          QUANTITY:1 TABLET(S);?
     Route: 048

REACTIONS (3)
  - Aggression [None]
  - Depression [None]
  - Hallucination [None]

NARRATIVE: CASE EVENT DATE: 20210128
